FAERS Safety Report 16119820 (Version 1)
Quarter: 2019Q1

REPORT INFORMATION
  Report Type: Spontaneous
  Country: CH (occurrence: CH)
  Receive Date: 20190326
  Receipt Date: 20190326
  Transmission Date: 20190418
  Serious: Yes (Other)
  Sender: FDA-Public Use
  Company Number: CH-ASTRAZENECA-2019SE43539

PATIENT
  Age: 21718 Day
  Sex: Male

DRUGS (19)
  1. LANTUS [Concomitant]
     Active Substance: INSULIN GLARGINE
  2. NEXIUM [Suspect]
     Active Substance: ESOMEPRAZOLE MAGNESIUM
     Dosage: 20.0MG UNKNOWN
     Route: 048
     Dates: start: 20190213, end: 20190228
  3. CLEXANE [Suspect]
     Active Substance: ENOXAPARIN SODIUM
     Dosage: 20.0MG UNKNOWN
     Route: 058
     Dates: start: 20190213, end: 20190217
  4. ESCITALOPRAM [Concomitant]
     Active Substance: ESCITALOPRAM OXALATE
  5. MST CONTINUS [Concomitant]
     Active Substance: MORPHINE SULFATE
  6. DAFALGAN [Concomitant]
     Active Substance: ACETAMINOPHEN
     Dosage: AS NECESSARY
  7. SANDOSTATINE [Suspect]
     Active Substance: OCTREOTIDE ACETATE
     Dosage: 30.0MG UNKNOWN
     Route: 030
     Dates: start: 20181218, end: 20190117
  8. ASPIRIN CARDIO [Concomitant]
     Active Substance: ASPIRIN
  9. PREGABALIN. [Concomitant]
     Active Substance: PREGABALIN
  10. LAXOBERON [Concomitant]
     Active Substance: SODIUM PICOSULFATE
     Dosage: AS NECESSARY
  11. PURSANA [Concomitant]
     Active Substance: FIG FRUIT OIL\SORBITOL
     Dosage: AS NECESSARY
  12. DEXAMETHASONE. [Concomitant]
     Active Substance: DEXAMETHASONE
     Dates: start: 20190217, end: 20190225
  13. BELOC ZOK [Concomitant]
     Active Substance: METOPROLOL SUCCINATE
  14. NOVORAPID [Concomitant]
     Active Substance: INSULIN ASPART
     Dosage: AS NECESSARY
  15. IMODIUM [Concomitant]
     Active Substance: LOPERAMIDE HYDROCHLORIDE
     Dosage: AS NECESSARY
  16. ATACAND [Concomitant]
     Active Substance: CANDESARTAN CILEXETIL
  17. TIVICAY [Concomitant]
     Active Substance: DOLUTEGRAVIR SODIUM
  18. DESCOVY [Concomitant]
     Active Substance: EMTRICITABINE\TENOFOVIR ALAFENAMIDE FUMARATE
  19. SEVREDOL [Concomitant]
     Active Substance: MORPHINE
     Dosage: AS NECESSARY

REACTIONS (1)
  - Thrombotic thrombocytopenic purpura [Recovering/Resolving]

NARRATIVE: CASE EVENT DATE: 20190213
